FAERS Safety Report 5370115-2 (Version None)
Quarter: 2007Q2

REPORT INFORMATION
  Report Type: 
  Country: None (occurrence: None)
  Receive Date: 20070613
  Receipt Date: 20070305
  Transmission Date: 20071010
  Serious: Yes (Other)
  Sender: FDA-Public Use
  Company Number: PHEH2007US02766

PATIENT

DRUGS (1)
  1. EXELON [Suspect]
     Dosage: 24 MG, QD; 12 MG, QD

REACTIONS (2)
  - HALLUCINATION [None]
  - INCORRECT DOSE ADMINISTERED [None]
